FAERS Safety Report 17791583 (Version 1)
Quarter: 2020Q2

REPORT INFORMATION
  Report Type: Spontaneous
  Country: DK (occurrence: DK)
  Receive Date: 20200515
  Receipt Date: 20200515
  Transmission Date: 20200714
  Serious: Yes (Hospitalization, Other)
  Sender: FDA-Public Use
  Company Number: DK-FRESENIUS KABI-FK202004665

PATIENT
  Age: 67 Year
  Sex: Female

DRUGS (2)
  1. NIMORAZOLE [Suspect]
     Active Substance: NIMORAZOLE
     Indication: METASTATIC SQUAMOUS CELL CARCINOMA
     Route: 065
     Dates: start: 20190205
  2. CARBOPLATIN (MANUFACTURER UNKNOWN) [Suspect]
     Active Substance: CARBOPLATIN
     Indication: METASTATIC SQUAMOUS CELL CARCINOMA
     Route: 065
     Dates: start: 20190205

REACTIONS (1)
  - Deep vein thrombosis [Recovering/Resolving]
